FAERS Safety Report 22192350 (Version 8)
Quarter: 2023Q4

REPORT INFORMATION
  Report Type: Report from Study
  Country: AR (occurrence: None)
  Receive Date: 20230410
  Receipt Date: 20231005
  Transmission Date: 20240109
  Serious: Yes (Hospitalization)
  Sender: FDA-Public Use
  Company Number: AR-ROCHE-3324373

PATIENT
  Age: 77 Year
  Sex: Male
  Weight: 67 kg

DRUGS (14)
  1. MOSUNETUZUMAB [Suspect]
     Active Substance: MOSUNETUZUMAB
     Indication: B-cell lymphoma
     Dosage: START DATE OF MOST RECENT DOSE OF STUDY DRUG PRIOR TO AE 29-MAR-2023
     Route: 058
     Dates: start: 20230322
  2. MOSUNETUZUMAB [Suspect]
     Active Substance: MOSUNETUZUMAB
     Dosage: ON 29/MAR/2023, MOST RECENT DOSE (45 MG) OF STUDY DRUG MOSUNETUZUMAB PRIOR TO AE/SAE
     Route: 058
  3. POLATUZUMAB VEDOTIN [Suspect]
     Active Substance: POLATUZUMAB VEDOTIN
     Indication: B-cell lymphoma
     Dosage: ON 22/MAR/2023, MOST RECENT DOSE (120.4 MG) OF STUDY DRUG POLATUZUMAB PRIOR TO AE/SAE
     Route: 042
     Dates: start: 20230322
  4. ATENOLOL [Concomitant]
     Active Substance: ATENOLOL
     Indication: Hypertension
     Route: 048
  5. TAMSULOSIN HYDROCHLORIDE [Concomitant]
     Active Substance: TAMSULOSIN HYDROCHLORIDE
     Indication: Benign prostatic hyperplasia
     Route: 048
  6. FILGRASTIM [Concomitant]
     Active Substance: FILGRASTIM
     Indication: Neutropenia
     Route: 058
     Dates: start: 20230412, end: 20230412
  7. OMEPRAZOLE [Concomitant]
     Active Substance: OMEPRAZOLE
     Route: 048
  8. SULFAMETHOXAZOLE [Concomitant]
     Active Substance: SULFAMETHOXAZOLE
     Route: 048
  9. TRIMETHOPRIM [Concomitant]
     Active Substance: TRIMETHOPRIM
     Route: 048
  10. ACYCLOVIR [Concomitant]
     Active Substance: ACYCLOVIR
     Route: 048
  11. ALLOPURINOL [Concomitant]
     Active Substance: ALLOPURINOL
     Route: 048
     Dates: end: 20230607
  12. TRAMADOL [Concomitant]
     Active Substance: TRAMADOL\TRAMADOL HYDROCHLORIDE
     Indication: Pain
     Route: 048
  13. ACETAMINOPHEN [Concomitant]
     Active Substance: ACETAMINOPHEN
     Indication: Pain
     Route: 048
  14. LORAZEPAM [Concomitant]
     Active Substance: LORAZEPAM
     Indication: Insomnia
     Route: 048
     Dates: start: 20230329, end: 20230331

REACTIONS (1)
  - COVID-19 [Recovered/Resolved]

NARRATIVE: CASE EVENT DATE: 20230401
